FAERS Safety Report 4639470-2 (Version None)
Quarter: 2005Q2

REPORT INFORMATION
  Report Type: 
  Country: None (occurrence: None)
  Receive Date: 20050418
  Receipt Date: 20050405
  Transmission Date: 20051028
  Serious: Yes (Life-Threatening, Hospitalization)
  Sender: FDA-Public Use
  Company Number: HQWYE697305APR05

PATIENT
  Age: 21 Year
  Sex: Male

DRUGS (4)
  1. TAZOCIN (PIPERACILLIN/TAZOBACTAM, INJECTION) [Suspect]
     Indication: BONE DISORDER
     Dosage: 4.5 G 3X PER 1 DAY INTRAVENOUS
     Route: 042
     Dates: start: 20050303, end: 20050328
  2. TAZOCIN (PIPERACILLIN/TAZOBACTAM, INJECTION) [Suspect]
     Indication: INFECTION
     Dosage: 4.5 G 3X PER 1 DAY INTRAVENOUS
     Route: 042
     Dates: start: 20050303, end: 20050328
  3. CIPRO [Suspect]
     Indication: INFECTION
     Dosage: 200 MG 2X PER 1 DAY INTRAVENOUS
     Route: 042
     Dates: start: 20050325, end: 20050328
  4. RIFADIN [Suspect]
     Indication: INFECTION
     Dosage: 3 TIMES PER ONE DAY ORAL
     Route: 048
     Dates: start: 20050303, end: 20050328

REACTIONS (2)
  - AMOEBIASIS [None]
  - HEPATORENAL SYNDROME [None]
